FAERS Safety Report 9719129 (Version 2)
Quarter: 2013Q4

REPORT INFORMATION
  Report Type: Report from Study
  Country: US (occurrence: US)
  Receive Date: 20131127
  Receipt Date: 20131127
  Transmission Date: 20140711
  Serious: Yes (Hospitalization)
  Sender: FDA-Public Use
  Company Number: PHHO2013US009480

PATIENT
  Age: 60 Year
  Sex: Female
  Weight: 104.3 kg

DRUGS (25)
  1. INC424 [Suspect]
     Dosage: 15 MG, BID
     Route: 048
     Dates: start: 20130520
  2. DOXEPIN HYDROCHLORIDE [Suspect]
     Dosage: 10 MG, QD (BED TIME)
     Route: 048
  3. AZACITIDINE [Suspect]
     Dosage: UNK
  4. COREG [Suspect]
     Dosage: 25 MG, BID
     Route: 048
  5. THIOCTIC ACID [Concomitant]
  6. ALTACE [Concomitant]
  7. BENADRYL                           /00647601/ [Concomitant]
  8. ENTECAVIR [Concomitant]
  9. IMDUR [Concomitant]
  10. BENADRYL /OLD FORM/ [Concomitant]
  11. LUNESTA [Concomitant]
  12. NASONEX [Concomitant]
  13. NITROGLYCERINE [Concomitant]
  14. NITROSTAT [Concomitant]
  15. NORVASC [Concomitant]
  16. OXYCODONE HCL [Concomitant]
  17. POTASSIUM [Concomitant]
  18. PREVACID [Concomitant]
  19. PROAIR HFA [Concomitant]
  20. SINGULAR [Concomitant]
  21. SPIRONOLACTONE [Concomitant]
  22. TRAMADOL HCL [Concomitant]
  23. TRIAMCINOLONE [Concomitant]
  24. TRICOR [Concomitant]
  25. ZOFRAN [Concomitant]

REACTIONS (1)
  - Anaemia [Unknown]
